FAERS Safety Report 15380358 (Version 4)
Quarter: 2018Q4

REPORT INFORMATION
  Report Type: Report from Study
  Country: US (occurrence: US)
  Receive Date: 20180913
  Receipt Date: 20181121
  Transmission Date: 20190204
  Serious: No
  Sender: FDA-Public Use
  Company Number: US-SA-2018SA255099

PATIENT
  Age: 55 Year
  Sex: Male

DRUGS (2)
  1. ALIROCUMAB PREFILLED PEN [Suspect]
     Active Substance: ALIROCUMAB
     Indication: BLOOD CHOLESTEROL INCREASED
     Dosage: UNK, QOW
     Route: 058
     Dates: start: 20180904
  2. ALIROCUMAB [Suspect]
     Active Substance: ALIROCUMAB
     Indication: BLOOD CHOLESTEROL INCREASED
     Dosage: 75 MG, QOW
     Route: 058
     Dates: start: 20180904

REACTIONS (8)
  - Diarrhoea [Unknown]
  - Nausea [Recovering/Resolving]
  - Dermal cyst [Not Recovered/Not Resolved]
  - Influenza like illness [Unknown]
  - Skin discolouration [Not Recovered/Not Resolved]
  - Abdominal pain upper [Unknown]
  - Sebaceous gland disorder [Not Recovered/Not Resolved]
  - Eye swelling [Unknown]

NARRATIVE: CASE EVENT DATE: 20180907
